FAERS Safety Report 8374464-5 (Version None)
Quarter: 2012Q2

REPORT INFORMATION
  Report Type: 
  Country: None (occurrence: None)
  Receive Date: 20120521
  Receipt Date: 20120516
  Transmission Date: 20120825
  Serious: Yes (Other)
  Sender: FDA-Public Use
  Company Number: PHHO2012FR007477

PATIENT
  Sex: Male
  Weight: 42 kg

DRUGS (9)
  1. METHOTREXATE [Suspect]
     Dosage: 17.15 G, UNK
     Route: 042
     Dates: start: 20110524, end: 20110718
  2. IFOSFAMIDE [Suspect]
     Dosage: 4.4 G, UNK
     Route: 042
     Dates: start: 20110616, end: 20110619
  3. DOXORUBICIN HCL [Suspect]
     Dosage: 104 MG, UNK
     Route: 042
     Dates: start: 20110725, end: 20110917
  4. NO TREATMENT RECEIVED [Suspect]
     Dosage: UNK
  5. CISPLATIN [Suspect]
     Dosage: 167 MG, UNK
     Route: 042
     Dates: start: 20110725, end: 20110917
  6. ETOPOSIDE [Suspect]
     Dosage: 110 MG, UNK
     Route: 042
     Dates: start: 20110626, end: 20110619
  7. ZOFRAN [Concomitant]
     Indication: NAUSEA
     Dosage: UNK
     Route: 042
     Dates: start: 20110919
  8. SPASFON [Concomitant]
     Indication: ABDOMINAL PAIN
     Dosage: UNK
     Route: 042
     Dates: start: 20110919
  9. TAZOBACTAM [Concomitant]
     Dosage: UNK
     Route: 042
     Dates: start: 20110919

REACTIONS (1)
  - HYPOCALCAEMIA [None]
